FAERS Safety Report 9486678 (Version 2)
Quarter: 2013Q3

REPORT INFORMATION
  Report Type: Spontaneous
  Country: US (occurrence: US)
  Receive Date: 20130829
  Receipt Date: 20130829
  Transmission Date: 20140515
  Serious: Yes (Death)
  Sender: FDA-Public Use
  Company Number: US-INCYTE CORPORATION-2013IN001443

PATIENT
  Age: 61 Year
  Sex: Male

DRUGS (2)
  1. JAKAFI [Suspect]
     Dosage: 5 MG, BID
     Route: 048
     Dates: start: 20121220, end: 201306
  2. JAKAFI [Suspect]
     Dosage: 25 MG, BID
     Route: 048
     Dates: start: 201306, end: 20130701

REACTIONS (3)
  - Death [Fatal]
  - Neoplasm progression [Unknown]
  - Drug ineffective [Unknown]
